FAERS Safety Report 4851304-X (Version None)
Quarter: 2005Q4

REPORT INFORMATION
  Report Type: 
  Country: None (occurrence: None)
  Receive Date: 20051208
  Receipt Date: 20051124
  Transmission Date: 20060501
  Serious: Yes (Death)
  Sender: FDA-Public Use
  Company Number: S05-CAN-05628-01

PATIENT
  Age: 57 Year
  Sex: Male

DRUGS (1)
  1. CELEXA [Suspect]
     Dosage: 60 MG QD PO
     Route: 048

REACTIONS (1)
  - COMPLETED SUICIDE [None]
